FAERS Safety Report 16474459 (Version 1)
Quarter: 2019Q2

REPORT INFORMATION
  Report Type: Spontaneous
  Country: US (occurrence: US)
  Receive Date: 20190625
  Receipt Date: 20190625
  Transmission Date: 20190711
  Serious: Yes (Other)
  Sender: FDA-Public Use
  Company Number: US-PFIZER INC-2019264302

PATIENT
  Age: 72 Year
  Sex: Female
  Weight: 81.19 kg

DRUGS (1)
  1. LYRICA [Suspect]
     Active Substance: PREGABALIN
     Indication: NEURALGIA
     Dosage: 75 MG, 2X/DAY (75MG TWICE A DAY BY MOUTH)
     Route: 048
     Dates: start: 201902, end: 20190614

REACTIONS (3)
  - Weight increased [Recovering/Resolving]
  - Fluid retention [Recovering/Resolving]
  - Peripheral swelling [Recovering/Resolving]

NARRATIVE: CASE EVENT DATE: 20190614
